FAERS Safety Report 6615704-X (Version None)
Quarter: 2010Q1

REPORT INFORMATION
  Report Type: 
  Country: None (occurrence: None)
  Receive Date: 20100305
  Receipt Date: 20100225
  Transmission Date: 20100710
  Serious: Yes (Hospitalization)
  Sender: FDA-Public Use
  Company Number: JP-ROCHE-688118

PATIENT
  Sex: Female

DRUGS (2)
  1. TAMIFLU [Suspect]
     Indication: INFLUENZA
     Route: 048
     Dates: start: 20100214
  2. CALONAL [Suspect]
     Indication: INFLUENZA
     Dosage: 2DF TAKEN AS NEEDED
     Route: 048

REACTIONS (1)
  - HEPATITIS FULMINANT [None]
